FAERS Safety Report 6840944-4 (Version None)
Quarter: 2010Q3

REPORT INFORMATION
  Report Type: 
  Country: None (occurrence: None)
  Receive Date: 20100714
  Receipt Date: 20070622
  Transmission Date: 20110219
  Serious: No
  Sender: FDA-Public Use
  Company Number: US-PFIZER INC-2007052903

PATIENT
  Sex: Female
  Weight: 59 kg

DRUGS (3)
  1. CHANTIX [Suspect]
     Indication: SMOKING CESSATION THERAPY
     Dates: start: 20070227, end: 20070401
  2. LAMICTAL [Concomitant]
     Indication: CONVULSION
  3. CITALOPRAM HYDROBROMIDE [Concomitant]
     Indication: ANXIETY

REACTIONS (3)
  - DIZZINESS [None]
  - HEART RATE INCREASED [None]
  - SUPRAVENTRICULAR EXTRASYSTOLES [None]
